FAERS Safety Report 5679996-6 (Version None)
Quarter: 2008Q1

REPORT INFORMATION
  Report Type: 
  Country: None (occurrence: None)
  Receive Date: 20080325
  Receipt Date: 20080325
  Transmission Date: 20080703
  Serious: Yes (Hospitalization)
  Sender: FDA-Public Use
  Company Number: None

PATIENT
  Age: 62 Year
  Sex: Male
  Weight: 75 kg

DRUGS (3)
  1. FLUPHENAZINE [Suspect]
     Indication: BIPOLAR DISORDER
     Dosage: 25MG Q2WEEKS IM
     Route: 030
     Dates: end: 20080201
  2. FLUPHENAZINE [Suspect]
     Indication: MANIA
     Dosage: 25MG Q2WEEKS IM
     Route: 030
     Dates: end: 20080201
  3. FLUPHENAZINE [Suspect]
     Dosage: 10MG TID PO
     Route: 048
     Dates: end: 20080201

REACTIONS (2)
  - CATATONIA [None]
  - DYSKINESIA [None]
